FAERS Safety Report 25336473 (Version 1)
Quarter: 2025Q2

REPORT INFORMATION
  Report Type: Spontaneous
  Country: US (occurrence: None)
  Receive Date: 20250519
  Receipt Date: 20250519
  Transmission Date: 20250717
  Serious: Yes (Hospitalization)
  Sender: FDA-CTU
  Company Number: None

PATIENT
  Sex: Male

DRUGS (11)
  1. POMALYST [Suspect]
     Active Substance: POMALIDOMIDE
     Indication: Plasma cell myeloma
     Route: 048
     Dates: start: 20241026
  2. ACYCLOVIR [Concomitant]
     Active Substance: ACYCLOVIR
  3. ADVAIR HFA [Concomitant]
     Active Substance: FLUTICASONE PROPIONATE\SALMETEROL XINAFOATE
  4. ALBUTEROL [Concomitant]
     Active Substance: ALBUTEROL
  5. ALLOPURINOL [Concomitant]
     Active Substance: ALLOPURINOL
  6. ASPIRIN [Concomitant]
     Active Substance: ASPIRIN
  7. BISACODYL [Concomitant]
     Active Substance: BISACODYL
  8. CALCIUM 600 TAB +D [Concomitant]
  9. CARBOXYMETHY POW SODIUM [Concomitant]
  10. CEFADROXIL [Concomitant]
     Active Substance: CEFADROXIL
  11. DARZALEX [Concomitant]
     Active Substance: DARATUMUMAB

REACTIONS (3)
  - Respiratory syncytial virus infection [None]
  - Fatigue [None]
  - Cytopenia [None]
